FAERS Safety Report 15838291 (Version 5)
Quarter: 2019Q1

REPORT INFORMATION
  Report Type: Spontaneous
  Country: HR (occurrence: HR)
  Receive Date: 20190117
  Receipt Date: 20190221
  Transmission Date: 20190417
  Serious: Yes (Other)
  Sender: FDA-Public Use
  Company Number: HR-PFIZER INC-2011204503

PATIENT
  Age: 31 Year
  Sex: Female

DRUGS (24)
  1. TRAMADOL/ACETAMINOPHEN [Suspect]
     Active Substance: ACETAMINOPHEN\TRAMADOL
     Dosage: 3X2 (37.5/325MG)
     Dates: start: 200709
  2. OXYCODONE [Suspect]
     Active Substance: OXYCODONE
     Dosage: 10 MM, PP
     Dates: start: 201003
  3. LEVOTHYROXINE. [Concomitant]
     Active Substance: LEVOTHYROXINE
     Dosage: 75 UG, UNK
     Dates: start: 201003
  4. GINKO BILOBA [Concomitant]
     Active Substance: GINKGO
     Dosage: 120 MG, UNK
     Dates: start: 201003
  5. DIAZEPAM. [Suspect]
     Active Substance: DIAZEPAM
     Dosage: 5MG 0,0,1
     Dates: start: 200709
  6. BUPRENORPHINE. [Suspect]
     Active Substance: BUPRENORPHINE
     Dosage: 70 UG/72H
     Dates: start: 200904
  7. BACLOFEN. [Suspect]
     Active Substance: BACLOFEN
     Dosage: 25 MG, 3X/DAY
     Dates: start: 200805
  8. ALPRAZOLAM. [Concomitant]
     Active Substance: ALPRAZOLAM
     Dosage: 0.5 MG, 3X1
     Dates: start: 200805
  9. IBUPROFEN. [Concomitant]
     Active Substance: IBUPROFEN
     Dosage: 400 MG, UNK
     Dates: start: 200703
  10. FENTANYL. [Suspect]
     Active Substance: FENTANYL
     Dosage: 100UG/72H
     Dates: start: 201003
  11. CARBAMAZEPINE. [Suspect]
     Active Substance: CARBAMAZEPINE
     Dosage: 200 MG, 2X/DAY
     Dates: start: 200709
  12. PIROXICAM. [Concomitant]
     Active Substance: PIROXICAM
     Dosage: 20 MG, UNK
     Dates: start: 200709
  13. NEUROBION FORTE [Concomitant]
     Active Substance: CYANOCOBALAMIN\PYRIDOXINE HYDROCHLORIDE\THIAMINE DISULFIDE
     Dosage: 2X1
     Dates: start: 200805
  14. PREGABALIN. [Suspect]
     Active Substance: PREGABALIN
     Dosage: 300 MG, 2X/DAY
     Dates: start: 201003
  15. SERTRALINE HCL [Suspect]
     Active Substance: SERTRALINE HYDROCHLORIDE
     Dosage: 1X1
     Dates: start: 200805
  16. TRAMADOL/ACETAMINOPHEN [Suspect]
     Active Substance: ACETAMINOPHEN\TRAMADOL
     Dosage: PP
     Dates: start: 201003
  17. ESOMEPRAZOLE. [Suspect]
     Active Substance: ESOMEPRAZOLE MAGNESIUM
     Dosage: 20 MG, 2X/DAY
     Dates: start: 201003
  18. OXYCODONE [Suspect]
     Active Substance: OXYCODONE
     Dosage: 10 MG, 3X/DAY
     Dates: start: 200904
  19. DIAZEPAM. [Suspect]
     Active Substance: DIAZEPAM
     Dosage: 2MG, 2MG, 5MG
     Dates: start: 201003
  20. LEVOTHYROXINE. [Concomitant]
     Active Substance: LEVOTHYROXINE
     Dosage: 50 UG, UNK
     Dates: start: 200703
  21. RANITIDINE. [Concomitant]
     Active Substance: RANITIDINE
     Dosage: 150 MG, 2X/DAY
     Dates: start: 200709
  22. GABAPENTIN. [Suspect]
     Active Substance: GABAPENTIN
     Dosage: 300 MG, 3X/DAY
     Dates: start: 200904
  23. SERTRALINE HCL [Suspect]
     Active Substance: SERTRALINE HYDROCHLORIDE
     Dosage: A 50MG
     Dates: start: 200904
  24. BACLOFEN. [Suspect]
     Active Substance: BACLOFEN
     Dosage: 10 MG, 3X/DAY
     Dates: start: 200709

REACTIONS (12)
  - Fatigue [Unknown]
  - Asthenia [Unknown]
  - Constipation [Unknown]
  - Sedation [Unknown]
  - Pruritus [Unknown]
  - Dizziness [Unknown]
  - Nausea [Unknown]
  - Ataxia [Unknown]
  - Oedema [Unknown]
  - Confusional state [Unknown]
  - Rash [Unknown]
  - Vomiting [Unknown]
